FAERS Safety Report 6318771-6 (Version None)
Quarter: 2009Q3

REPORT INFORMATION
  Report Type: 
  Country: None (occurrence: None)
  Receive Date: 20090821
  Receipt Date: 20090812
  Transmission Date: 20100115
  Serious: Yes (Hospitalization, Other)
  Sender: FDA-Public Use
  Company Number: US-ABBOTT-09P-163-0586352-00

PATIENT
  Sex: Male
  Weight: 90.8 kg

DRUGS (15)
  1. HUMIRA [Suspect]
     Indication: COLITIS ULCERATIVE
     Dosage: LOADING DOSE
     Dates: start: 20090609, end: 20090707
  2. REMICADE [Suspect]
     Indication: COLITIS ULCERATIVE
     Route: 042
     Dates: start: 20031219, end: 20081112
  3. REMICADE [Suspect]
     Indication: CROHN'S DISEASE
  4. CIMZIA [Suspect]
     Indication: COLITIS ULCERATIVE
     Dates: start: 20081112, end: 20090601
  5. PREDNISONE [Concomitant]
     Indication: DRUG USE FOR UNKNOWN INDICATION
     Dosage: 10-50 MG
  6. ASACOL [Concomitant]
     Indication: COLITIS ULCERATIVE
     Dosage: 400MG DAILY
  7. IMURAN [Concomitant]
     Indication: COLITIS ULCERATIVE
     Dosage: 200MG DAILY
     Dates: start: 20040130, end: 20070824
  8. IMURAN [Concomitant]
     Dates: start: 20090514
  9. VITAMIN D [Concomitant]
     Indication: DRUG USE FOR UNKNOWN INDICATION
     Dosage: 60000 UNITS DAILY
  10. FLAGYL [Concomitant]
     Indication: DRUG USE FOR UNKNOWN INDICATION
     Dosage: 500MG DAILY 2 IN 1 DAY
  11. TUMS [Concomitant]
     Indication: DRUG USE FOR UNKNOWN INDICATION
     Dosage: 500MG 2 IN 1 DAY
  12. MULTIPLE VITAMINS [Concomitant]
     Indication: DRUG USE FOR UNKNOWN INDICATION
  13. TYLENOL (CAPLET) [Concomitant]
     Indication: DRUG USE FOR UNKNOWN INDICATION
  14. SINGULAIR [Concomitant]
     Indication: DRUG USE FOR UNKNOWN INDICATION
  15. ALLEGRA [Concomitant]
     Indication: DRUG USE FOR UNKNOWN INDICATION

REACTIONS (16)
  - ABDOMINAL DISTENSION [None]
  - ABDOMINAL PAIN [None]
  - ADENOCARCINOMA [None]
  - APPENDIX DISORDER [None]
  - ASCITES [None]
  - COLONIC OBSTRUCTION [None]
  - COLONIC POLYP [None]
  - LOCALISED INTRAABDOMINAL FLUID COLLECTION [None]
  - MESENTERIC VEIN THROMBOSIS [None]
  - METASTATIC NEOPLASM [None]
  - NEPHROLITHIASIS [None]
  - PERITONITIS [None]
  - PORTAL VEIN THROMBOSIS [None]
  - RECTAL CANCER [None]
  - SPLENIC VEIN THROMBOSIS [None]
  - THROMBOSIS [None]
